FAERS Safety Report 15012876 (Version 2)
Quarter: 2018Q3

REPORT INFORMATION
  Report Type: Spontaneous
  Country: US (occurrence: US)
  Receive Date: 20180614
  Receipt Date: 20180801
  Transmission Date: 20181010
  Serious: Yes (Hospitalization)
  Sender: FDA-Public Use
  Company Number: US-TEVA-2018-US-909301

PATIENT
  Sex: Female

DRUGS (1)
  1. METOPROLOL SUCCINATE ER [Suspect]
     Active Substance: METOPROLOL SUCCINATE
     Indication: CARDIAC DISORDER
     Dates: start: 2007, end: 20180601

REACTIONS (9)
  - Fatigue [Unknown]
  - Ventricular extrasystoles [Not Recovered/Not Resolved]
  - Blood pressure increased [Unknown]
  - Syncope [Not Recovered/Not Resolved]
  - Asthenia [Unknown]
  - Heart rate decreased [Unknown]
  - Palpitations [Not Recovered/Not Resolved]
  - Dizziness [Unknown]
  - Vision blurred [Not Recovered/Not Resolved]
